FAERS Safety Report 17810150 (Version 2)
Quarter: 2020Q2

REPORT INFORMATION
  Report Type: Report from Study
  Country: SI (occurrence: SI)
  Receive Date: 20200520
  Receipt Date: 20200611
  Transmission Date: 20200714
  Serious: Yes (Death, Hospitalization, Other)
  Sender: FDA-Public Use
  Company Number: SI-TAKEDA-2020TUS022565

PATIENT
  Age: 66 Year
  Sex: Male

DRUGS (4)
  1. COUPET [Concomitant]
     Active Substance: ROSUVASTATIN CALCIUM
     Dosage: 20 MILLIGRAM
  2. FRAXIPARINE [Concomitant]
     Active Substance: NADROPARIN CALCIUM
     Dosage: 0.8 MILLILITER
     Route: 058
  3. VEDOLIZUMAB [Suspect]
     Active Substance: VEDOLIZUMAB
     Indication: COLITIS ULCERATIVE
     Dosage: 300 MILLIGRAM
     Route: 042
     Dates: start: 20190522, end: 20200214
  4. BLOXAN [Concomitant]
     Active Substance: METOPROLOL TARTRATE
     Dosage: 50 MILLIGRAM

REACTIONS (6)
  - Mixed adenoneuroendocrine carcinoma [Unknown]
  - Lymphangiosis carcinomatosa [Unknown]
  - Death [Fatal]
  - Intestinal metastasis [Unknown]
  - Colitis ulcerative [Unknown]
  - Metastases to peritoneum [Unknown]
